FAERS Safety Report 5181821-7 (Version None)
Quarter: 2006Q4

REPORT INFORMATION
  Report Type: 
  Country: None (occurrence: None)
  Receive Date: 20061220
  Receipt Date: 20061031
  Transmission Date: 20070319
  Serious: Yes (Hospitalization)
  Sender: FDA-Public Use
  Company Number: GBWYE382231OCT06

PATIENT
  Sex: Female

DRUGS (8)
  1. ENBREL [Suspect]
     Indication: RHEUMATOID ARTHRITIS
     Route: 058
     Dates: start: 20060115, end: 20060901
  2. FOSAMAX [Concomitant]
     Indication: OSTEOPOROSIS
     Route: 048
  3. DIHYDROCODEINE BITARTRATE INJ [Concomitant]
     Indication: ANALGESIC EFFECT
  4. LANSOPRAZOLE [Concomitant]
     Route: 048
  5. ADCAL D3 [Concomitant]
     Indication: OSTEOPOROSIS
  6. CO-DYDRAMOL [Concomitant]
     Indication: ANALGESIC EFFECT
  7. PREDNISOLONE [Concomitant]
     Indication: RHEUMATOID ARTHRITIS
     Route: 048
  8. PIRITON [Concomitant]
     Route: 048

REACTIONS (2)
  - BRONCHIECTASIS [None]
  - LOWER RESPIRATORY TRACT INFECTION [None]
